FAERS Safety Report 21623004 (Version 1)
Quarter: 2022Q4

REPORT INFORMATION
  Report Type: Spontaneous
  Country: FR (occurrence: FR)
  Receive Date: 20221121
  Receipt Date: 20221121
  Transmission Date: 20230113
  Serious: Yes (Hospitalization)
  Sender: FDA-Public Use
  Company Number: None

PATIENT
  Age: 71 Year
  Sex: Female
  Weight: 54.6 kg

DRUGS (4)
  1. KEYTRUDA [Suspect]
     Active Substance: PEMBROLIZUMAB
     Indication: Malignant melanoma
     Dosage: 400 MILLIGRAM, EVERY 6 WEEKS
     Route: 042
     Dates: start: 20220825, end: 20220825
  2. KISQALI [Suspect]
     Active Substance: RIBOCICLIB
     Indication: Malignant melanoma
     Dosage: 1 TABLET/DAY FOR 21 DAYS
     Route: 042
     Dates: start: 20220729, end: 20220906
  3. KISQALI [Suspect]
     Active Substance: RIBOCICLIB
     Dosage: 1 TABLET/DAY FOR 21 DAYS
     Route: 042
     Dates: start: 20220920, end: 20220920
  4. LETROZOLE [Suspect]
     Active Substance: LETROZOLE
     Indication: Breast cancer metastatic
     Dosage: 1
     Route: 042
     Dates: start: 20220603

REACTIONS (1)
  - Hepatic cytolysis [Recovering/Resolving]

NARRATIVE: CASE EVENT DATE: 20220919
